FAERS Safety Report 9877329 (Version 2)
Quarter: 2014Q1

REPORT INFORMATION
  Report Type: Spontaneous
  Country: DE (occurrence: DE)
  Receive Date: 20140206
  Receipt Date: 20140206
  Transmission Date: 20141002
  Serious: Yes (Other)
  Sender: FDA-Public Use
  Company Number: DE-ASTELLAS-2013EU011701

PATIENT
  Sex: Male

DRUGS (5)
  1. XTANDI [Suspect]
     Dosage: UNK
     Route: 065
  2. CONCOR [Concomitant]
     Indication: HYPERTENSION
     Dosage: UNK %, UNKNOWN/D
     Route: 065
  3. VALSARTAN [Concomitant]
     Indication: HYPERTENSION
     Dosage: UNK
     Route: 065
  4. MOXODURA [Concomitant]
     Indication: HYPERTENSION
     Dosage: UNK MG, UNKNOWN/D
     Route: 065
  5. MARCUMAR [Concomitant]
     Dosage: UNK
     Route: 065

REACTIONS (2)
  - Blood pressure increased [Unknown]
  - Hypotension [Unknown]
